FAERS Safety Report 6419544-6 (Version None)
Quarter: 2009Q4

REPORT INFORMATION
  Report Type: 
  Country: None (occurrence: None)
  Receive Date: 20091027
  Receipt Date: 20091016
  Transmission Date: 20100525
  Serious: Yes (Other)
  Sender: FDA-Public Use
  Company Number: OMPQ-NO-0910L-0862

PATIENT
  Age: 58 Year
  Sex: Male

DRUGS (1)
  1. OMNIPAQUE 300 [Suspect]
     Indication: CONGENITAL CEREBROVASCULAR ANOMALY
     Dosage: SINGLE DOSE, I.A. SINGLE DOSE
     Route: 013

REACTIONS (6)
  - CONTRAST MEDIA REACTION [None]
  - DEPRESSED LEVEL OF CONSCIOUSNESS [None]
  - EXTRAVASATION [None]
  - GASTRITIS HAEMORRHAGIC [None]
  - NEUROTOXICITY [None]
  - RENAL FAILURE [None]
